FAERS Safety Report 6128005-3 (Version None)
Quarter: 2009Q1

REPORT INFORMATION
  Report Type: 
  Country: None (occurrence: None)
  Receive Date: 20090320
  Receipt Date: 20090320
  Transmission Date: 20090719
  Serious: Yes (Hospitalization)
  Sender: FDA-Public Use
  Company Number: None

PATIENT
  Age: 67 Year
  Sex: Female
  Weight: 60.3284 kg

DRUGS (11)
  1. RANIBIZUMAB 0.5MG [Suspect]
     Indication: MACULAR DEGENERATION
     Dosage: 0.5MG, INTERVITREAL INJ; 0.5MG, INTRAVITREAL INJ
     Dates: start: 20080305
  2. RANIBIZUMAB 0.5MG [Suspect]
     Indication: MACULAR DEGENERATION
     Dosage: 0.5MG, INTERVITREAL INJ; 0.5MG, INTRAVITREAL INJ
     Dates: start: 20090130
  3. RANIBIZUMAB 0.5MG [Suspect]
  4. AVELOX [Concomitant]
  5. PREDNISONE [Concomitant]
  6. LISINOPRIL [Concomitant]
  7. DYAZIDE [Concomitant]
  8. PULICORT INHALER [Concomitant]
  9. LIPITOR [Concomitant]
  10. LOPID [Concomitant]
  11. ALBUTEROL [Concomitant]

REACTIONS (11)
  - ABNORMAL BEHAVIOUR [None]
  - AGITATION [None]
  - ANXIETY [None]
  - CHRONIC OBSTRUCTIVE PULMONARY DISEASE [None]
  - CONDITION AGGRAVATED [None]
  - HYPERTENSION [None]
  - PSYCHOTIC DISORDER [None]
  - REFUSAL OF TREATMENT BY PATIENT [None]
  - RESTLESSNESS [None]
  - SKIN LESION [None]
  - SPEECH DISORDER [None]
